FAERS Safety Report 15509644 (Version 1)
Quarter: 2018Q4

REPORT INFORMATION
  Report Type: Spontaneous
  Country: FR (occurrence: FR)
  Receive Date: 20181016
  Receipt Date: 20181016
  Transmission Date: 20190205
  Serious: Yes (Death)
  Sender: FDA-Public Use
  Company Number: FR-SA-2018SA282537

PATIENT
  Age: 19 Year
  Sex: Male

DRUGS (7)
  1. THERALENE [Suspect]
     Active Substance: TRIMEPRAZINE
     Dosage: INCONNUE
     Route: 065
     Dates: start: 201804, end: 20180402
  2. ZOLPIDEM TARTRATE. [Suspect]
     Active Substance: ZOLPIDEM TARTRATE
     Dosage: INCONNUE
     Route: 065
     Dates: start: 201804, end: 20180402
  3. SULPIRIDE [Suspect]
     Active Substance: SULPIRIDE
     Dosage: INCONNUE
     Route: 065
     Dates: start: 201804, end: 20180402
  4. CODEINE PHOSPHATE/PARACETAMOL [Suspect]
     Active Substance: ACETAMINOPHEN\CODEINE PHOSPHATE
     Dosage: INCONNUE
     Route: 065
     Dates: start: 201804, end: 20180402
  5. QUETIAPINE FUMARATE. [Suspect]
     Active Substance: QUETIAPINE FUMARATE
     Dosage: INCONNUE
     Route: 065
     Dates: start: 201804, end: 20180402
  6. VENLAFAXINE HYDROCHLORIDE. [Suspect]
     Active Substance: VENLAFAXINE HYDROCHLORIDE
     Dosage: INCONNUE
     Route: 065
     Dates: start: 201804, end: 20180402
  7. ALPRAZOLAM. [Suspect]
     Active Substance: ALPRAZOLAM
     Dosage: INCONNUE
     Route: 065
     Dates: start: 201804, end: 20180402

REACTIONS (1)
  - Poisoning deliberate [Fatal]

NARRATIVE: CASE EVENT DATE: 201804
